FAERS Safety Report 5732437-2 (Version None)
Quarter: 2008Q2

REPORT INFORMATION
  Report Type: 
  Country: None (occurrence: None)
  Receive Date: 20080508
  Receipt Date: 20080428
  Transmission Date: 20081010
  Serious: Yes (Hospitalization)
  Sender: FDA-Public Use
  Company Number: DE-AMGEN-UK278094

PATIENT
  Sex: Male
  Weight: 82 kg

DRUGS (6)
  1. VECTIBIX [Suspect]
     Indication: COLORECTAL CANCER
     Route: 065
     Dates: start: 20080304, end: 20080304
  2. BISOPROLOL FUMARATE [Concomitant]
     Route: 048
  3. TORSEMIDE [Concomitant]
     Route: 048
  4. MARCUMAR [Concomitant]
     Route: 048
  5. CAPTOPRIL [Concomitant]
     Route: 048
  6. GABAPENTIN [Concomitant]
     Route: 048

REACTIONS (3)
  - MUCOSAL INFECTION [None]
  - PURULENCE [None]
  - SKIN TOXICITY [None]
